FAERS Safety Report 12411858 (Version 1)
Quarter: 2016Q2

REPORT INFORMATION
  Report Type: Spontaneous
  Country: FR (occurrence: FR)
  Receive Date: 20160527
  Receipt Date: 20160527
  Transmission Date: 20160815
  Serious: Yes (Hospitalization)
  Sender: FDA-Public Use
  Company Number: FR-009507513-1605FRA011081

PATIENT
  Age: 93 Year
  Sex: Female

DRUGS (6)
  1. INEXIUM (ESOMEPRAZOLE MAGNESIUM) [Suspect]
     Active Substance: ESOMEPRAZOLE MAGNESIUM
     Dosage: FORMULATION GASTRORESISTANT  TABLET
     Route: 048
  2. CEBUTID [Suspect]
     Active Substance: FLURBIPROFEN
     Dosage: 50 MG, QD
     Route: 048
  3. TEMESTA [Suspect]
     Active Substance: LORAZEPAM
     Dosage: UNK
  4. AVLOCARDYL [Suspect]
     Active Substance: PROPRANOLOL HYDROCHLORIDE
     Dosage: UNK
     Route: 048
  5. TARDYFERON [Suspect]
     Active Substance: FERROUS SULFATE\FOLIC ACID
     Dosage: UNK
     Route: 048
  6. AERIUS [Suspect]
     Active Substance: DESLORATADINE
     Dosage: UNK
     Route: 048

REACTIONS (4)
  - Macroglossia [Recovering/Resolving]
  - Dysphagia [Recovered/Resolved]
  - Angioedema [Recovering/Resolving]
  - Salivary hypersecretion [Recovering/Resolving]

NARRATIVE: CASE EVENT DATE: 201603
